FAERS Safety Report 13898295 (Version 1)
Quarter: 2017Q3

REPORT INFORMATION
  Report Type: Spontaneous
  Country: DE (occurrence: DE)
  Receive Date: 20170824
  Receipt Date: 20170824
  Transmission Date: 20171127
  Serious: Yes (Death, Hospitalization)
  Sender: FDA-Public Use
  Company Number: DE-ROCHE-1982370

PATIENT
  Age: 84 Year
  Sex: Female

DRUGS (1)
  1. AVASTIN [Suspect]
     Active Substance: BEVACIZUMAB
     Indication: MACULAR DEGENERATION
     Route: 042
     Dates: start: 20151202, end: 20160106

REACTIONS (4)
  - Death [Fatal]
  - Off label use [Fatal]
  - Cerebral infarction [Not Recovered/Not Resolved]
  - Intentional product use issue [Fatal]

NARRATIVE: CASE EVENT DATE: 20160126
